FAERS Safety Report 11136101 (Version 1)
Quarter: 2015Q2

REPORT INFORMATION
  Report Type: Spontaneous
  Country: FR (occurrence: FR)
  Receive Date: 20150526
  Receipt Date: 20150526
  Transmission Date: 20150821
  Serious: Yes (Hospitalization, Other)
  Sender: FDA-Public Use
  Company Number: FR-PFIZER INC-2015171036

PATIENT
  Age: 58 Year
  Sex: Male

DRUGS (9)
  1. ATACAND [Concomitant]
     Active Substance: CANDESARTAN CILEXETIL
     Dosage: 8 MG IN THE MORNING
  2. STILNOX [Concomitant]
     Active Substance: ZOLPIDEM TARTRATE
     Dosage: 1 DOSAGE FORM AT BEDTIME
  3. DOMPERIDONE [Concomitant]
     Active Substance: DOMPERIDONE
     Dosage: UNK, AS NEEDED
  4. CISPLATIN. [Concomitant]
     Active Substance: CISPLATIN
     Indication: METASTASES TO CENTRAL NERVOUS SYSTEM
     Dosage: UNK, CYCLIC
     Dates: start: 20150417
  5. ALIMTA [Concomitant]
     Active Substance: PEMETREXED DISODIUM
     Indication: METASTASES TO CENTRAL NERVOUS SYSTEM
     Dosage: UNK, CYCLIC
     Dates: start: 20150417
  6. AVASTIN [Suspect]
     Active Substance: BEVACIZUMAB
     Indication: METASTASES TO CENTRAL NERVOUS SYSTEM
     Dosage: SINGLE
     Route: 042
     Dates: start: 20150417, end: 20150417
  7. MEDROL [Suspect]
     Active Substance: METHYLPREDNISOLONE
     Indication: BRAIN OEDEMA
     Dosage: 100 MG ONCE DAILY IN THE MORNING
     Route: 048
     Dates: start: 201502
  8. DOLIPRANE [Concomitant]
     Active Substance: ACETAMINOPHEN
     Dosage: UNK, AS NEEDED
  9. ALPRAZOLAM. [Concomitant]
     Active Substance: ALPRAZOLAM
     Dosage: 0.5 MG IN THE MORNING

REACTIONS (2)
  - Osteonecrosis of jaw [Unknown]
  - Tooth abscess [Unknown]

NARRATIVE: CASE EVENT DATE: 201503
